FAERS Safety Report 7576649-4 (Version None)
Quarter: 2011Q2

REPORT INFORMATION
  Report Type: 
  Country: None (occurrence: None)
  Receive Date: 20110628
  Receipt Date: 20110613
  Transmission Date: 20111010
  Serious: Yes (Hospitalization, Other)
  Sender: FDA-Public Use
  Company Number: US-BAYER-201040814NA

PATIENT
  Age: 17 Year
  Sex: Female
  Weight: 51.701 kg

DRUGS (11)
  1. RESPIRATORY SYSTEM [Concomitant]
     Route: 048
  2. LAXATIVES [Concomitant]
  3. ACIPHEX [Concomitant]
     Dosage: 20 MG, QD
     Route: 048
  4. YAZ [Suspect]
     Indication: CONTRACEPTION
     Dosage: ONE MONTH SUPPLY OF SAMPLES IN 2007
     Route: 048
     Dates: start: 20070701, end: 20090901
  5. ZYRTEC [Concomitant]
     Dosage: 10 MG, QD
     Route: 048
  6. I.V. SOLUTIONS [Concomitant]
     Indication: SYNCOPE
     Dosage: UNK
     Dates: start: 20080601
  7. MIRALAX [Concomitant]
     Dosage: UNK
  8. YAZ [Suspect]
     Indication: ACNE
  9. YAZ [Suspect]
     Indication: MENSTRUAL CYCLE MANAGEMENT
  10. NEXIUM [Concomitant]
  11. PRILOSEC [Concomitant]
     Route: 048

REACTIONS (17)
  - GALLBLADDER INJURY [None]
  - GALLBLADDER DISORDER [None]
  - MOOD SWINGS [None]
  - CHOLECYSTITIS CHRONIC [None]
  - APHONIA [None]
  - TREMOR [None]
  - HEADACHE [None]
  - SYNCOPE [None]
  - DEHYDRATION [None]
  - DIARRHOEA [None]
  - NAUSEA [None]
  - SINUS TACHYCARDIA [None]
  - SINUS DISORDER [None]
  - GASTROOESOPHAGEAL REFLUX DISEASE [None]
  - COUGH [None]
  - ANXIETY [None]
  - IRRITABLE BOWEL SYNDROME [None]
